FAERS Safety Report 18456879 (Version 1)
Quarter: 2020Q4

REPORT INFORMATION
  Report Type: Spontaneous
  Country: US (occurrence: US)
  Receive Date: 20201103
  Receipt Date: 20201103
  Transmission Date: 20210114
  Serious: Yes (Other)
  Sender: FDA-Public Use
  Company Number: US-009507513-2010USA011167

PATIENT
  Sex: Male

DRUGS (14)
  1. JANUMET [Suspect]
     Active Substance: METFORMIN HYDROCHLORIDE\SITAGLIPTIN PHOSPHATE
     Dosage: UNK
     Route: 048
     Dates: start: 2010
  2. ANDROGEL [Concomitant]
     Active Substance: TESTOSTERONE
  3. GLIMEPIRIDE. [Concomitant]
     Active Substance: GLIMEPIRIDE
  4. ALLOPURINOL. [Concomitant]
     Active Substance: ALLOPURINOL
  5. INVOKANA [Suspect]
     Active Substance: CANAGLIFLOZIN
     Dosage: 300 MILLIGRAM
     Route: 048
     Dates: start: 202009
  6. ELIQUIS [Concomitant]
     Active Substance: APIXABAN
  7. POTASSIUM (UNSPECIFIED) [Concomitant]
     Active Substance: POTASSIUM
  8. CIALIS [Concomitant]
     Active Substance: TADALAFIL
  9. INVOKANA [Suspect]
     Active Substance: CANAGLIFLOZIN
     Indication: DIABETES MELLITUS
     Dosage: 300 MILLIGRAM
     Route: 048
     Dates: start: 201509, end: 201509
  10. FUROSEMIDE. [Concomitant]
     Active Substance: FUROSEMIDE
  11. OMEPRAZOLE. [Concomitant]
     Active Substance: OMEPRAZOLE
  12. HYDROCODONE [Concomitant]
     Active Substance: HYDROCODONE
  13. METFORMIN [Concomitant]
     Active Substance: METFORMIN HYDROCHLORIDE
  14. RAPAFLO [Concomitant]
     Active Substance: SILODOSIN

REACTIONS (4)
  - Respiratory tract oedema [Recovered/Resolved]
  - Drug hypersensitivity [Unknown]
  - Urinary tract infection [Recovered/Resolved]
  - Catheter placement [Recovered/Resolved]

NARRATIVE: CASE EVENT DATE: 2010
